FAERS Safety Report 16106335 (Version 1)
Quarter: 2019Q1

REPORT INFORMATION
  Report Type: Spontaneous
  Country: US (occurrence: US)
  Receive Date: 20190322
  Receipt Date: 20190322
  Transmission Date: 20190418
  Serious: No
  Sender: FDA-Public Use
  Company Number: US-CATALYST PHARMACEUTICALS, INC-2019CAT00025

PATIENT
  Age: 37 Year
  Sex: Female
  Weight: 122.45 kg

DRUGS (6)
  1. PREDNISONE. [Concomitant]
     Active Substance: PREDNISONE
     Dosage: 20 MG, 1X/DAY
  2. FIRDAPSE [Suspect]
     Active Substance: AMIFAMPRIDINE
     Indication: MYASTHENIC SYNDROME
     Dosage: 10 MG, 1X/DAY AT NIGHT
     Route: 048
     Dates: start: 201902
  3. FIRDAPSE [Suspect]
     Active Substance: AMIFAMPRIDINE
     Dosage: 15 MG EVERY 4 HOURS
     Route: 048
     Dates: start: 201902
  4. ZOLOFT [Concomitant]
     Active Substance: SERTRALINE HYDROCHLORIDE
     Indication: ANXIETY
     Dosage: 50 MG, 1X/DAY
  5. AMIFAMPRIDINE [Suspect]
     Active Substance: AMIFAMPRIDINE
  6. MESTINON [Concomitant]
     Active Substance: PYRIDOSTIGMINE BROMIDE
     Dosage: 120 MG, 6X/DAY (EVERY 4 HOURS)

REACTIONS (9)
  - Micturition urgency [Not Recovered/Not Resolved]
  - Intentional overdose [Not Recovered/Not Resolved]
  - Nausea [Recovered/Resolved]
  - Renal disorder [Recovering/Resolving]
  - Urinary retention [Recovering/Resolving]
  - Urinary incontinence [Recovered/Resolved]
  - Hot flush [Recovered/Resolved]
  - Headache [Recovered/Resolved]
  - Pollakiuria [Not Recovered/Not Resolved]

NARRATIVE: CASE EVENT DATE: 201902
